FAERS Safety Report 13366565 (Version 1)
Quarter: 2017Q1

REPORT INFORMATION
  Report Type: Spontaneous
  Country: US (occurrence: US)
  Receive Date: 20170323
  Receipt Date: 20170323
  Transmission Date: 20170429
  Serious: No
  Sender: FDA-Public Use
  Company Number: None

PATIENT
  Age: 77 Year
  Sex: Female
  Weight: 63.56 kg

DRUGS (13)
  1. OMEPRAZOLE DR [Concomitant]
     Active Substance: OMEPRAZOLE
  2. METOPROLOL TARTRATE. [Concomitant]
     Active Substance: METOPROLOL TARTRATE
  3. AMLODIPINE BESYLATE. [Concomitant]
     Active Substance: AMLODIPINE BESYLATE
  4. LOSARTAN POT [Concomitant]
     Active Substance: LOSARTAN POTASSIUM
  5. ONE-A-DAY VITAMIN [Concomitant]
  6. VITAMIN B12 [Concomitant]
     Active Substance: CYANOCOBALAMIN
  7. FISH OIL [Concomitant]
     Active Substance: FISH OIL
  8. COQ10 [Concomitant]
     Active Substance: UBIDECARENONE
  9. VITA D3 [Concomitant]
  10. ATORVASTATIN [Concomitant]
     Active Substance: ATORVASTATIN
  11. OCUVITE W/LUTEIN [Concomitant]
  12. CALCIUM [Concomitant]
     Active Substance: CALCIUM
  13. IBANDRONATE SODIUM 150 MG TABLET [Suspect]
     Active Substance: IBANDRONATE SODIUM
     Indication: OSTEOPOROSIS
     Dosage: 1 PILL MONTHLY BY MOUTH
     Route: 048
     Dates: start: 20161022, end: 20170303

REACTIONS (10)
  - Dizziness [None]
  - Quality of life decreased [None]
  - Muscular weakness [None]
  - Sensitivity of teeth [None]
  - Headache [None]
  - Dysphagia [None]
  - Musculoskeletal stiffness [None]
  - Weight increased [None]
  - Psoriasis [None]
  - Arthralgia [None]

NARRATIVE: CASE EVENT DATE: 20170303
